FAERS Safety Report 10617155 (Version 1)
Quarter: 2014Q4

REPORT INFORMATION
  Report Type: Spontaneous
  Country: US (occurrence: US)
  Receive Date: 20141201
  Receipt Date: 20141201
  Transmission Date: 20150529
  Serious: Yes (Other)
  Sender: FDA-Public Use
  Company Number: US-BAYER-2014-173841

PATIENT
  Age: 40 Year
  Sex: Female

DRUGS (1)
  1. MIRENA [Suspect]
     Active Substance: LEVONORGESTREL
     Dosage: 20 ?G/D, CONT
     Route: 015
     Dates: start: 2009, end: 201406

REACTIONS (5)
  - Acne [None]
  - Rash pruritic [Recovered/Resolved]
  - Genital haemorrhage [None]
  - Cervix disorder [None]
  - Thyroid disorder [None]

NARRATIVE: CASE EVENT DATE: 20141027
